FAERS Safety Report 9484740 (Version 1)
Quarter: 2013Q3

REPORT INFORMATION
  Report Type: Spontaneous
  Country: CA (occurrence: CA)
  Receive Date: 20130828
  Receipt Date: 20130828
  Transmission Date: 20140515
  Serious: Yes (Other)
  Sender: FDA-Public Use
  Company Number: CA-AMGEN-KDL439695

PATIENT
  Age: 52 Year
  Sex: Female
  Weight: 68.1 kg

DRUGS (1)
  1. ENBREL [Suspect]
     Indication: ANKYLOSING SPONDYLITIS
     Dosage: UNK UNK, QWK
     Route: 065
     Dates: start: 20100915

REACTIONS (2)
  - Memory impairment [Recovering/Resolving]
  - Abdominal pain upper [Recovering/Resolving]
